FAERS Safety Report 7649871-6 (Version None)
Quarter: 2011Q3

REPORT INFORMATION
  Report Type: 
  Country: None (occurrence: None)
  Receive Date: 20110802
  Receipt Date: 20110712
  Transmission Date: 20111222
  Serious: Yes (Hospitalization, Other)
  Sender: FDA-Public Use
  Company Number: PHHY2011GB43031

PATIENT
  Age: 29 Year
  Sex: Female

DRUGS (13)
  1. ACYCLOVIR [Suspect]
     Indication: NECROTISING RETINITIS
     Dosage: 10 MG/KG, TID
     Route: 042
  2. LAMIVUDINE [Concomitant]
     Indication: HIV INFECTION
     Dosage: UNK UKN, UNK
     Route: 065
  3. PREDNISOLONE [Concomitant]
     Dosage: UNK UKN, UNK
     Route: 065
  4. ATRIPLA [Concomitant]
     Dosage: 1 DF, QD
     Route: 065
  5. DEXAMETHASONE [Concomitant]
     Indication: NECROTISING RETINITIS
     Dosage: UNK UKN, UNK
     Route: 061
  6. EFAVIRENZ [Concomitant]
     Dosage: UNK UKN, UNK
     Route: 065
  7. DAPSONE [Concomitant]
     Dosage: UNK UKN, UNK
     Route: 065
  8. FLUCONAZOLE [Concomitant]
     Dosage: UNK UKN, UNK
     Route: 065
  9. GANCICLOVIR [Concomitant]
     Dosage: UNK UKN, UNK
     Route: 065
  10. TENOFOVIR DISOPROXIL FUMARATE [Concomitant]
     Indication: HIV INFECTION
     Dosage: UNK UKN, UNK
     Route: 065
  11. FAMCICLOVIR [Suspect]
     Indication: NECROTISING RETINITIS
     Dosage: UNK UKN, UNK
     Route: 048
  12. ACYCLOVIR [Suspect]
     Dosage: 800 MG, FIVE TIMES A DAY
     Route: 048
  13. CETIRIZINE HCL [Concomitant]
     Dosage: UNK UKN, UNK
     Route: 048

REACTIONS (6)
  - DRUG HYPERSENSITIVITY [None]
  - VISION BLURRED [None]
  - SKIN DISORDER [None]
  - ANGIOEDEMA [None]
  - RASH MACULAR [None]
  - CHEST DISCOMFORT [None]
